FAERS Safety Report 8059079 (Version 10)
Quarter: 2012Q4

REPORT INFORMATION
  Report Type: 
  Country: US (occurrence: US)
  Receive Date: 20110728
  Receipt Date: 20120918
  Transmission Date: 20130627
  Serious: Yes (Hospitalization, Disabling, Other)
  Sender: FDA-Public Use
  Company Number: US-009507513-1107USA03465

PATIENT

DRUGS (10)
  1. FOSAMAX [Suspect]
     Dosage: 70 mg, QW
     Route: 048
     Dates: start: 20020320
  2. FOSAMAX [Suspect]
     Dosage: UNK mg, UNK
     Route: 048
     Dates: start: 200204, end: 200712
  3. FOSAMAX PLUS D [Suspect]
     Indication: OSTEOPENIA
     Dosage: UNK mg, UNK
     Route: 048
     Dates: start: 20080129, end: 20081110
  4. FOSAMAX [Suspect]
     Indication: OSTEOPENIA
     Dosage: 70 mg, UNK
     Route: 048
     Dates: start: 20090209, end: 201008
  5. ALENDRONATE SODIUM [Suspect]
     Dosage: 70 mg, UNK
  6. RECLAST [Suspect]
     Indication: OSTEOPENIA
     Route: 041
     Dates: start: 201009, end: 201102
  7. CALCIUM (UNSPECIFIED) (+) VITAMIN D (UNSPECIFIED) [Concomitant]
     Indication: BLOOD CALCIUM DECREASED
     Dosage: 500/600
     Dates: start: 1999
  8. CALCIUM (UNSPECIFIED) (+) VITAMIN D (UNSPECIFIED) [Concomitant]
     Indication: VITAMIN D DEFICIENCY
  9. VITAMIN E [Concomitant]
     Dates: start: 1999
  10. ESOMEPRAZOLE [Concomitant]
     Dates: start: 2002

REACTIONS (38)
  - Femur fracture [Not Recovered/Not Resolved]
  - Stress fracture [Not Recovered/Not Resolved]
  - Fracture delayed union [Not Recovered/Not Resolved]
  - Hyponatraemia [Unknown]
  - Hypokalaemia [Recovered/Resolved]
  - Osteoporosis [Not Recovered/Not Resolved]
  - Gingival disorder [Unknown]
  - Impaired healing [Unknown]
  - Arthritis [Not Recovered/Not Resolved]
  - Anxiety [Unknown]
  - Osteoarthritis [Not Recovered/Not Resolved]
  - Gastric polyps [Unknown]
  - Sinus congestion [Not Recovered/Not Resolved]
  - Upper-airway cough syndrome [Not Recovered/Not Resolved]
  - Oropharyngeal pain [Not Recovered/Not Resolved]
  - Dysuria [Unknown]
  - Breast calcifications [Unknown]
  - Helicobacter infection [Unknown]
  - Dyspnoea exertional [Not Recovered/Not Resolved]
  - Sleep apnoea syndrome [Unknown]
  - Intervertebral disc degeneration [Unknown]
  - Nerve root lesion [Unknown]
  - Radiculopathy [Unknown]
  - Rib fracture [Recovering/Resolving]
  - Anaemia postoperative [Unknown]
  - Polyarthritis [Unknown]
  - Urinary tract infection [Unknown]
  - Haemorrhagic diathesis [Unknown]
  - Dyspnoea [Unknown]
  - Fracture nonunion [Unknown]
  - Pain in extremity [Unknown]
  - Mouth ulceration [Recovered/Resolved]
  - Arthralgia [Unknown]
  - Back pain [Unknown]
  - Back pain [Unknown]
  - Muscle spasms [Not Recovered/Not Resolved]
  - Musculoskeletal chest pain [Unknown]
  - Musculoskeletal chest pain [Unknown]
